FAERS Safety Report 6982589-1 (Version None)
Quarter: 2010Q3

REPORT INFORMATION
  Report Type: 
  Country: None (occurrence: None)
  Receive Date: 20100914
  Receipt Date: 20100211
  Transmission Date: 20110219
  Serious: Yes (Other)
  Sender: FDA-Public Use
  Company Number: US-PFIZER INC-2010021442

PATIENT
  Sex: Female

DRUGS (8)
  1. LYRICA [Suspect]
     Indication: NEURALGIA
     Dosage: 100 MG, 1X/DAY
     Route: 048
     Dates: start: 20080101
  2. LYRICA [Suspect]
     Indication: NERVE COMPRESSION
  3. ESTRADIOL [Concomitant]
     Dosage: 5 MG, 1X/DAY
  4. ACETYLSALICYLIC ACID [Concomitant]
     Dosage: 81 MG, 1X/DAY
  5. FOSAMAX [Concomitant]
     Dosage: 70 MG, UNK
  6. CYMBALTA [Concomitant]
     Indication: NEURALGIA
     Dosage: 30 MG, 1X/DAY
  7. CARDIZEM CD [Concomitant]
     Dosage: 80 MG, 2X/DAY
  8. AMITRIPTYLINE [Concomitant]
     Dosage: 50 MG, 1X/DAY

REACTIONS (5)
  - CONFUSIONAL STATE [None]
  - DEPRESSION [None]
  - DYSPHAGIA [None]
  - MEMORY IMPAIRMENT [None]
  - TREMOR [None]
